FAERS Safety Report 21961216 (Version 1)
Quarter: 2023Q1

REPORT INFORMATION
  Report Type: Spontaneous
  Country: FR (occurrence: FR)
  Receive Date: 20230207
  Receipt Date: 20230207
  Transmission Date: 20230418
  Serious: Yes (Other)
  Sender: FDA-Public Use
  Company Number: None

PATIENT
  Age: 15 Year
  Sex: Male

DRUGS (4)
  1. LANSOPRAZOLE [Suspect]
     Active Substance: LANSOPRAZOLE
     Indication: Wisdom teeth removal
     Dosage: UNK (POSOLOGIE INCONNUE)
     Route: 065
     Dates: start: 20220219, end: 20220219
  2. AUGMENTIN [Suspect]
     Active Substance: AMOXICILLIN\CLAVULANATE POTASSIUM
     Indication: Wisdom teeth removal
     Dosage: UNK (POSOLOGIE INCONNUE)
     Route: 065
     Dates: start: 20220219, end: 20220219
  3. DOLIPRANE [Suspect]
     Active Substance: ACETAMINOPHEN
     Indication: Wisdom teeth removal
     Dosage: UNK (POSOLOGIE INCONNUE)
     Route: 065
     Dates: start: 20220219, end: 20220219
  4. KETOPROFEN [Suspect]
     Active Substance: KETOPROFEN
     Indication: Wisdom teeth removal
     Dosage: UNK (POSOLOGIE INCONNUE)
     Route: 065
     Dates: start: 20220219, end: 20220219

REACTIONS (1)
  - Angioedema [Recovered/Resolved]

NARRATIVE: CASE EVENT DATE: 20220219
